FAERS Safety Report 4553820-7 (Version None)
Quarter: 2005Q1

REPORT INFORMATION
  Report Type: 
  Country: None (occurrence: None)
  Receive Date: 20050114
  Receipt Date: 20050114
  Transmission Date: 20050727
  Serious: Yes (Disabling)
  Sender: FDA-Public Use
  Company Number: None

PATIENT
  Age: 79 Year
  Sex: Male
  Weight: 109.7705 kg

DRUGS (1)
  1. LABETALOL HCL [Suspect]
     Indication: HEART RATE INCREASED
     Dosage: SEE IMAGE
     Route: 048
     Dates: start: 20040719, end: 20040724

REACTIONS (7)
  - ASTHENIA [None]
  - DEAFNESS UNILATERAL [None]
  - DYSPNOEA [None]
  - FEELING ABNORMAL [None]
  - INFECTION [None]
  - RESPIRATORY DISORDER [None]
  - SINUSITIS [None]
